FAERS Safety Report 7270007-8 (Version None)
Quarter: 2011Q1

REPORT INFORMATION
  Report Type: 
  Country: None (occurrence: None)
  Receive Date: 20110202
  Receipt Date: 20110127
  Transmission Date: 20110831
  Serious: Yes (Hospitalization)
  Sender: FDA-Public Use
  Company Number: ZA-ROCHE-756067

PATIENT
  Age: 26 Year
  Sex: Female

DRUGS (1)
  1. ROACUTAN [Suspect]
     Route: 048

REACTIONS (3)
  - VOMITING [None]
  - HEADACHE [None]
  - NAUSEA [None]
